FAERS Safety Report 25347476 (Version 1)
Quarter: 2025Q2

REPORT INFORMATION
  Report Type: Spontaneous
  Country: US (occurrence: None)
  Receive Date: 20250521
  Receipt Date: 20250521
  Transmission Date: 20250717
  Serious: Yes (Life-Threatening, Disabling)
  Sender: FDA-CTU
  Company Number: None

PATIENT
  Age: 31 Year
  Sex: Female
  Weight: 76.5 kg

DRUGS (6)
  1. MOXIFLOXACIN [Suspect]
     Active Substance: MOXIFLOXACIN
     Indication: Sexually transmitted disease
     Dosage: OTHER QUANTITY : 7 TABLET(S);?FREQUENCY : DAILY;?
     Route: 048
  2. MAGNESIUM [Concomitant]
     Active Substance: MAGNESIUM
  3. POTASSIUM [Concomitant]
     Active Substance: POTASSIUM
  4. GLUTATHIONE [Concomitant]
     Active Substance: GLUTATHIONE
  5. VITAMIN D [Concomitant]
     Active Substance: VITAMIN D NOS
  6. VITAMIN C [Concomitant]
     Active Substance: ASCORBIC ACID

REACTIONS (17)
  - Neuralgia [None]
  - Burning sensation [None]
  - Paraesthesia [None]
  - Hypoaesthesia [None]
  - Hyperaesthesia [None]
  - Loss of personal independence in daily activities [None]
  - Pain [None]
  - Muscular weakness [None]
  - Tendon pain [None]
  - Mobility decreased [None]
  - Fatigue [None]
  - Discomfort [None]
  - Fatigue [None]
  - Emotional distress [None]
  - Drug ineffective [None]
  - Anxiety [None]
  - Fear [None]

NARRATIVE: CASE EVENT DATE: 20230914
